FAERS Safety Report 6070657-0 (Version None)
Quarter: 2009Q2

REPORT INFORMATION
  Report Type: 
  Country: None (occurrence: None)
  Receive Date: 20090209
  Receipt Date: 20090202
  Transmission Date: 20091009
  Serious: Yes (Life-Threatening, Hospitalization)
  Sender: FDA-Public Use
  Company Number: ZM-BRISTOL-MYERS SQUIBB COMPANY-14477517

PATIENT
  Age: 47 Year
  Sex: Female

DRUGS (7)
  1. EFAVIRENZ [Suspect]
     Indication: HIV INFECTION
     Dosage: INTERRUPTED ON 27-DEC-2008 DURATION 23DAYS
     Route: 048
     Dates: start: 20081205
  2. EMTRICITABINE AND TENOFOVIR DISOPROXIL FUMARATE [Suspect]
     Indication: HIV INFECTION
     Dosage: 1 DOSAGE FORM = 200/300MG. INTERRUPTED ON 30-DEC-2008 DURATION 26DAYS
     Route: 048
     Dates: start: 20081205
  3. ETHAMBUTOL HYDROCHLORIDE [Concomitant]
     Dates: start: 20081207, end: 20081227
  4. ISONIAZID [Concomitant]
     Dates: start: 20081207, end: 20081227
  5. PYRAZINAMIDE [Concomitant]
     Dates: start: 20081207, end: 20081227
  6. RIFAMPIN [Concomitant]
     Dates: start: 20081207, end: 20081227
  7. SULFAMETHOXAZOLE AND TRIMETHOPRIM [Concomitant]
     Dates: start: 20081207, end: 20081227

REACTIONS (4)
  - ANAEMIA [None]
  - HEPATIC ENCEPHALOPATHY [None]
  - HEPATITIS [None]
  - RENAL IMPAIRMENT [None]
